FAERS Safety Report 13047918 (Version 2)
Quarter: 2017Q1

REPORT INFORMATION
  Report Type: Spontaneous
  Country: US (occurrence: US)
  Receive Date: 20161220
  Receipt Date: 20170206
  Transmission Date: 20170428
  Serious: No
  Sender: FDA-Public Use
  Company Number: US-PFIZER INC-2016586498

PATIENT
  Age: 63 Year
  Sex: Female

DRUGS (2)
  1. LYRICA [Suspect]
     Active Substance: PREGABALIN
     Indication: TREMOR
  2. LYRICA [Suspect]
     Active Substance: PREGABALIN
     Indication: NEUROPATHY PERIPHERAL
     Dosage: 75 MG, 3X/DAY
     Route: 048
     Dates: start: 20160829, end: 20160912

REACTIONS (8)
  - Onychoclasis [Unknown]
  - Peripheral swelling [Recovering/Resolving]
  - Drug hypersensitivity [Unknown]
  - Nail disorder [Recovering/Resolving]
  - Skin exfoliation [Recovering/Resolving]
  - Onychomadesis [Recovering/Resolving]
  - Dermatitis [Unknown]
  - Skin tightness [Recovering/Resolving]
